FAERS Safety Report 10089733 (Version 2)
Quarter: 2014Q2

REPORT INFORMATION
  Report Type: Spontaneous
  Country: NL (occurrence: None)
  Receive Date: 20140417
  Receipt Date: 20140530
  Transmission Date: 20141212
  Serious: Yes (Hospitalization)
  Sender: FDA-Public Use
  Company Number: 2014AP002607

PATIENT
  Age: 77 Year
  Sex: Female

DRUGS (3)
  1. PERINDOPRIL ERBUMINE [Suspect]
     Dosage: 4 UNK UNK
  2. METFORMIN (METFORMIN) [Concomitant]
  3. ATORVASTATIN (ATORVASTATN) [Concomitant]

REACTIONS (12)
  - Hyponatraemia [None]
  - Nausea [None]
  - Vomiting [None]
  - Balance disorder [None]
  - Fall [None]
  - Weight decreased [None]
  - Malaise [None]
  - Skin turgor decreased [None]
  - Fluid intake reduced [None]
  - Inappropriate antidiuretic hormone secretion [None]
  - Blood potassium decreased [None]
  - Blood glucose increased [None]
